FAERS Safety Report 25271246 (Version 1)
Quarter: 2025Q2

REPORT INFORMATION
  Report Type: Spontaneous
  Country: US (occurrence: US)
  Receive Date: 20250506
  Receipt Date: 20250506
  Transmission Date: 20250717
  Serious: Yes (Hospitalization, Other)
  Sender: AUCTA PHARMACEUTICALS
  Company Number: US-AUCTA-000031

PATIENT
  Age: 45 Year
  Sex: Female

DRUGS (2)
  1. OXCARBAZEPINE [Interacting]
     Active Substance: OXCARBAZEPINE
     Indication: Mood swings
  2. ARIPIPRAZOLE [Interacting]
     Active Substance: ARIPIPRAZOLE
     Indication: Bipolar I disorder
     Dosage: MONTHLY INJECTIONS
     Route: 048

REACTIONS (3)
  - Condition aggravated [Unknown]
  - Drug interaction [Unknown]
  - Bipolar I disorder [Recovered/Resolved]
